FAERS Safety Report 11868115 (Version 2)
Quarter: 2016Q1

REPORT INFORMATION
  Report Type: Report from Study
  Country: TR (occurrence: TR)
  Receive Date: 20151224
  Receipt Date: 20160111
  Transmission Date: 20160526
  Serious: Yes (Hospitalization)
  Sender: FDA-Public Use
  Company Number: TR-ABBVIE-15K-161-1526117-00

PATIENT
  Age: 55 Year
  Sex: Male
  Weight: 140 kg

DRUGS (1)
  1. HUMIRA [Suspect]
     Active Substance: ADALIMUMAB
     Indication: PSORIASIS
     Route: 058
     Dates: start: 20150407, end: 20150818

REACTIONS (2)
  - Inflammation of wound [Recovered/Resolved]
  - Skin wound [Recovered/Resolved]

NARRATIVE: CASE EVENT DATE: 201508
